FAERS Safety Report 17272591 (Version 1)
Quarter: 2020Q1

REPORT INFORMATION
  Report Type: Spontaneous
  Country: US (occurrence: US)
  Receive Date: 20200114
  Receipt Date: 20200114
  Transmission Date: 20200409
  Serious: Yes (Hospitalization)
  Sender: FDA-Public Use
  Company Number: None

PATIENT
  Age: 71 Year
  Sex: Male

DRUGS (13)
  1. AMLODIPINE [Concomitant]
     Active Substance: AMLODIPINE BESYLATE
  2. BUPROPION. [Concomitant]
     Active Substance: BUPROPION
  3. DOXEPIN [Concomitant]
     Active Substance: DOXEPIN
  4. PENTOXIFYLLI [Concomitant]
  5. GABAPENTIN. [Concomitant]
     Active Substance: GABAPENTIN
  6. DULOXETINE. [Concomitant]
     Active Substance: DULOXETINE
  7. ELIQUIS [Concomitant]
     Active Substance: APIXABAN
  8. FLUOXETINE [Concomitant]
     Active Substance: FLUOXETINE HYDROCHLORIDE
  9. COSENTYX [Suspect]
     Active Substance: SECUKINUMAB
     Indication: PSORIATIC ARTHROPATHY
     Dosage: ?          OTHER FREQUENCY:Q28DAYS;?
     Route: 058
     Dates: start: 20180306
  10. ATORVASTATIN [Concomitant]
     Active Substance: ATORVASTATIN
  11. FOLIC ACID. [Concomitant]
     Active Substance: FOLIC ACID
  12. LOSARTAN. [Concomitant]
     Active Substance: LOSARTAN
  13. CARVEDILOL. [Concomitant]
     Active Substance: CARVEDILOL

REACTIONS (1)
  - Shoulder operation [None]

NARRATIVE: CASE EVENT DATE: 20191220
